FAERS Safety Report 20917749 (Version 1)
Quarter: 2022Q2

REPORT INFORMATION
  Report Type: Spontaneous
  Country: US (occurrence: US)
  Receive Date: 20220606
  Receipt Date: 20220606
  Transmission Date: 20220720
  Serious: No
  Sender: FDA-Public Use
  Company Number: US-AMGEN-USASP2022092650

PATIENT
  Age: 47 Year
  Sex: Male

DRUGS (7)
  1. INFLIXIMAB [Suspect]
     Active Substance: INFLIXIMAB
     Indication: Sarcoidosis
     Route: 065
  2. INFLIXIMAB [Suspect]
     Active Substance: INFLIXIMAB
     Indication: Off label use
  3. HYDROXYCHLOROQUINE [Concomitant]
     Active Substance: HYDROXYCHLOROQUINE
     Indication: Sarcoidosis
  4. METHOTREXATE [Concomitant]
     Active Substance: METHOTREXATE
     Indication: Sarcoidosis
  5. LEFLUNOMIDE [Concomitant]
     Active Substance: LEFLUNOMIDE
     Indication: Sarcoidosis
  6. ADALIMUMAB [Concomitant]
     Active Substance: ADALIMUMAB
     Indication: Sarcoidosis
  7. ABATACEPT [Concomitant]
     Active Substance: ABATACEPT
     Indication: Sarcoidosis

REACTIONS (2)
  - Drug ineffective for unapproved indication [Unknown]
  - Off label use [Unknown]
